FAERS Safety Report 25957953 (Version 2)
Quarter: 2025Q4

REPORT INFORMATION
  Report Type: Spontaneous
  Country: US (occurrence: US)
  Receive Date: 20251024
  Receipt Date: 20251031
  Transmission Date: 20260118
  Serious: No
  Sender: ROCHE
  Company Number: US-ROCHE-10000414877

PATIENT
  Age: 62 Year
  Sex: Female
  Weight: 49.44 kg

DRUGS (2)
  1. XOLAIR [Interacting]
     Active Substance: OMALIZUMAB
     Indication: Asthma
     Dosage: STRENGTH: 150 MG/ML
     Route: 058
     Dates: start: 202504
  2. MOUNJARO [Interacting]
     Active Substance: TIRZEPATIDE
     Indication: Type 2 diabetes mellitus
     Route: 058
     Dates: start: 2022

REACTIONS (6)
  - Thrombosis [Recovered/Resolved]
  - Mydriasis [Unknown]
  - Eye disorder [Unknown]
  - Nausea [Recovered/Resolved]
  - Movement disorder [Unknown]
  - Drug interaction [Unknown]

NARRATIVE: CASE EVENT DATE: 20250701
